FAERS Safety Report 17776406 (Version 2)
Quarter: 2021Q3

REPORT INFORMATION
  Report Type: Report from Study
  Country: US (occurrence: US)
  Receive Date: 20200513
  Receipt Date: 20210806
  Transmission Date: 20211014
  Serious: Yes (Hospitalization, Other)
  Sender: FDA-Public Use
  Company Number: US-ACADIA PHARMACEUTICALS INC.-ACA-2019-013574

PATIENT
  Age: 72 Year
  Sex: Male

DRUGS (2)
  1. NUPLAZID [Suspect]
     Active Substance: PIMAVANSERIN TARTRATE
     Indication: PARKINSON^S DISEASE
     Dosage: 34 MG, QD
     Route: 048
     Dates: start: 201907
  2. NUPLAZID [Suspect]
     Active Substance: PIMAVANSERIN TARTRATE
     Dosage: 34 MG, QD
     Route: 048
     Dates: start: 20190723

REACTIONS (8)
  - Depressed level of consciousness [Unknown]
  - Hallucination [Unknown]
  - Hallucination [Unknown]
  - Cognitive disorder [Unknown]
  - Ankle fracture [Unknown]
  - Gingivitis [Unknown]
  - Asthenia [Unknown]
  - Hallucination [Unknown]

NARRATIVE: CASE EVENT DATE: 201907
